FAERS Safety Report 8296439-7 (Version None)
Quarter: 2012Q2

REPORT INFORMATION
  Report Type: 
  Country: None (occurrence: None)
  Receive Date: 20120418
  Receipt Date: 20120410
  Transmission Date: 20120825
  Serious: Yes (Other)
  Sender: FDA-Public Use
  Company Number: GB-ABBOTT-12P-167-0900781-00

PATIENT

DRUGS (2)
  1. DESFLURANE [Suspect]
     Indication: PRODUCT USED FOR UNKNOWN INDICATION
  2. SEVOFLURANE [Suspect]
     Indication: PRODUCT USED FOR UNKNOWN INDICATION

REACTIONS (1)
  - DEVICE MALFUNCTION [None]
